FAERS Safety Report 7995977-1 (Version None)
Quarter: 2011Q4

REPORT INFORMATION
  Report Type: 
  Country: None (occurrence: None)
  Receive Date: 20111216
  Receipt Date: 20111208
  Transmission Date: 20120403
  Serious: Yes (Hospitalization)
  Sender: FDA-Public Use
  Company Number: AUR-APL-2011-03706

PATIENT
  Age: 54 Year
  Sex: Male

DRUGS (6)
  1. SIMVASTATIN [Concomitant]
  2. ATIVAN [Concomitant]
  3. LISINOPRIL [Concomitant]
  4. PAROXETINE HCL [Suspect]
     Indication: DEPRESSION
     Dosage: (20 MG,1 D)
     Dates: start: 20031201, end: 20110521
  5. PAROXETINE HCL [Suspect]
     Indication: ANXIETY
     Dosage: (20 MG,1 D)
     Dates: start: 20031201, end: 20110521
  6. GLUCOPAGE (METFORMIN) [Concomitant]

REACTIONS (4)
  - AGGRESSION [None]
  - ABNORMAL BEHAVIOUR [None]
  - ALCOHOL USE [None]
  - HYPOMANIA [None]
